FAERS Safety Report 14308573 (Version 3)
Quarter: 2018Q1

REPORT INFORMATION
  Report Type: Spontaneous
  Country: US (occurrence: US)
  Receive Date: 20171220
  Receipt Date: 20180321
  Transmission Date: 20180509
  Serious: No
  Sender: FDA-Public Use
  Company Number: US-PFIZER INC-2017536839

PATIENT
  Age: 59 Year
  Sex: Female

DRUGS (2)
  1. IBUPROFEN. [Suspect]
     Active Substance: IBUPROFEN
     Indication: HEADACHE
     Dosage: 200 MG, 1X/DAY
     Route: 048
  2. IBUPROFEN. [Suspect]
     Active Substance: IBUPROFEN
     Indication: ARTHRITIS

REACTIONS (3)
  - Nausea [Unknown]
  - Drug ineffective [Unknown]
  - Arthritis [Unknown]
